FAERS Safety Report 7494985-7 (Version None)
Quarter: 2011Q2

REPORT INFORMATION
  Report Type: 
  Country: None (occurrence: None)
  Receive Date: 20110520
  Receipt Date: 20110511
  Transmission Date: 20111010
  Serious: No
  Sender: FDA-Public Use
  Company Number: US-B.I. PHARMACEUTICALS,INC./RIDGEFIELD-2011-BP-13309BP

PATIENT
  Sex: Male

DRUGS (9)
  1. SYNTHROID [Concomitant]
     Indication: HYPOTHYROIDISM
  2. PRADAXA [Suspect]
     Indication: ATRIAL FIBRILLATION
     Dosage: 300 MG
     Route: 048
     Dates: start: 20110325, end: 20110503
  3. CORDARONE [Concomitant]
     Indication: ATRIAL FIBRILLATION
  4. ALPHAGAN [Concomitant]
     Indication: GLAUCOMA
  5. PRILOSEC [Concomitant]
     Indication: DYSPEPSIA
  6. COSOPT [Concomitant]
     Indication: GLAUCOMA
  7. ASPIRIN [Concomitant]
     Indication: ROUTINE HEALTH MAINTENANCE
  8. LAMOTRIGINE [Concomitant]
     Indication: CONVULSION
  9. XALATAN [Concomitant]
     Indication: GLAUCOMA

REACTIONS (3)
  - POLLAKIURIA [None]
  - DIARRHOEA [None]
  - THIRST [None]
